FAERS Safety Report 15735244 (Version 1)
Quarter: 2018Q4

REPORT INFORMATION
  Report Type: Report from Study
  Country: US (occurrence: US)
  Receive Date: 20181218
  Receipt Date: 20181218
  Transmission Date: 20190205
  Serious: Yes (Other)
  Sender: FDA-Public Use
  Company Number: US-BAYER-2018-231386

PATIENT
  Age: 74 Year
  Sex: Male

DRUGS (13)
  1. NEXAVAR [Suspect]
     Active Substance: SORAFENIB
     Indication: RENAL CANCER
     Dosage: 400 MG, BID
     Route: 048
     Dates: start: 20180726
  2. VICTOZA [Concomitant]
     Active Substance: LIRAGLUTIDE
  3. BUMETANIDE. [Concomitant]
     Active Substance: BUMETANIDE
  4. POTASSIUM [Concomitant]
     Active Substance: POTASSIUM
  5. TRESIBA [Concomitant]
     Active Substance: INSULIN DEGLUDEC
  6. WARFARIN [Concomitant]
     Active Substance: WARFARIN
  7. ROSUVASTATIN. [Concomitant]
     Active Substance: ROSUVASTATIN
  8. LOSARTAN. [Concomitant]
     Active Substance: LOSARTAN
  9. SPIRONOLACTONE. [Concomitant]
     Active Substance: SPIRONOLACTONE
  10. MULTIVITAMIN (16) [Concomitant]
     Active Substance: VITAMINS
  11. TRIAMTERENE. [Concomitant]
     Active Substance: TRIAMTERENE
  12. LEVOTHYROXINE. [Concomitant]
     Active Substance: LEVOTHYROXINE
  13. FENOFIBRATE. [Concomitant]
     Active Substance: FENOFIBRATE

REACTIONS (3)
  - Skin erosion [None]
  - Diarrhoea [Unknown]
  - Erythema [None]
